APPROVED DRUG PRODUCT: CLOMIPRAMINE HYDROCHLORIDE
Active Ingredient: CLOMIPRAMINE HYDROCHLORIDE
Strength: 25MG
Dosage Form/Route: CAPSULE;ORAL
Application: A074953 | Product #001 | TE Code: AB
Applicant: SANDOZ INC
Approved: Jun 25, 1997 | RLD: No | RS: No | Type: RX